FAERS Safety Report 6022676-8 (Version None)
Quarter: 2008Q4

REPORT INFORMATION
  Report Type: 
  Country: None (occurrence: None)
  Receive Date: 20081222
  Receipt Date: 20081222
  Transmission Date: 20090506
  Serious: Yes (Other)
  Sender: FDA-Public Use
  Company Number: None

PATIENT
  Age: 79 Year
  Sex: Male
  Weight: 81.6475 kg

DRUGS (1)
  1. ISOSORBIDE MONONITRATE [Suspect]
     Indication: HYPERTENSION
     Dates: start: 20071102, end: 20080305

REACTIONS (3)
  - BLOOD DISORDER [None]
  - DIZZINESS [None]
  - PRODUCT QUALITY ISSUE [None]
